FAERS Safety Report 12635102 (Version 2)
Quarter: 2016Q3

REPORT INFORMATION
  Report Type: Report from Study
  Country: CA (occurrence: CA)
  Receive Date: 20160809
  Receipt Date: 20160813
  Transmission Date: 20161109
  Serious: Yes (Other)
  Sender: FDA-Public Use
  Company Number: CA-JNJFOC-20160801504

PATIENT
  Age: 36 Year
  Sex: Female
  Weight: 90 kg

DRUGS (5)
  1. REMICADE [Suspect]
     Active Substance: INFLIXIMAB
     Indication: ANKYLOSING SPONDYLITIS
     Route: 042
     Dates: start: 20160730, end: 20160802
  2. REMICADE [Suspect]
     Active Substance: INFLIXIMAB
     Indication: SPONDYLOARTHROPATHY
     Route: 042
     Dates: start: 20160619, end: 20160806
  3. MACROBID [Concomitant]
     Active Substance: NITROFURANTOIN\NITROFURANTOIN MONOHYDRATE
     Route: 048
     Dates: start: 20160730, end: 20160802
  4. REMICADE [Suspect]
     Active Substance: INFLIXIMAB
     Indication: ANKYLOSING SPONDYLITIS
     Route: 042
     Dates: start: 20160619, end: 20160806
  5. REMICADE [Suspect]
     Active Substance: INFLIXIMAB
     Indication: SPONDYLOARTHROPATHY
     Route: 042
     Dates: start: 20160730, end: 20160802

REACTIONS (8)
  - Arthralgia [Unknown]
  - Urinary tract infection [Unknown]
  - Product use issue [Unknown]
  - Product use issue [Unknown]
  - Back pain [Unknown]
  - Headache [Unknown]
  - Off label use [Unknown]
  - Insomnia [Unknown]

NARRATIVE: CASE EVENT DATE: 2016
